FAERS Safety Report 5344549-6 (Version None)
Quarter: 2007Q2

REPORT INFORMATION
  Report Type: 
  Country: None (occurrence: None)
  Receive Date: 20070604
  Receipt Date: 20070523
  Transmission Date: 20071010
  Serious: Yes (Other)
  Sender: FDA-Public Use
  Company Number: GB-PFIZER INC-2007042731

PATIENT
  Age: 90 Year
  Sex: Male

DRUGS (2)
  1. LATANOPROST [Suspect]
     Indication: OPEN ANGLE GLAUCOMA
     Route: 061
  2. DORZOLAMIDE [Suspect]
     Indication: OPEN ANGLE GLAUCOMA
     Route: 061

REACTIONS (2)
  - ECTROPION [None]
  - SURGERY [None]
